FAERS Safety Report 17533875 (Version 5)
Quarter: 2022Q2

REPORT INFORMATION
  Report Type: Spontaneous
  Country: US (occurrence: US)
  Receive Date: 20200312
  Receipt Date: 20220509
  Transmission Date: 20220721
  Serious: No
  Sender: FDA-Public Use
  Company Number: US-PFIZER INC-2020107533

PATIENT
  Age: 89 Year
  Sex: Female
  Weight: 86 kg

DRUGS (5)
  1. NORVASC [Suspect]
     Active Substance: AMLODIPINE BESYLATE
     Indication: Blood pressure measurement
     Dosage: 5 MG, 1X/DAY
     Route: 048
  2. NITROSTAT [Suspect]
     Active Substance: NITROGLYCERIN
     Indication: Dyspnoea
     Dosage: 0.4 MG, AS NEEDED
  3. LIPITOR [Concomitant]
     Active Substance: ATORVASTATIN CALCIUM
     Indication: Blood cholesterol abnormal
     Dosage: UNK
  4. XALATAN [Concomitant]
     Active Substance: LATANOPROST
     Dosage: UNK
  5. LASIX [Concomitant]
     Active Substance: FUROSEMIDE
     Dosage: UNK

REACTIONS (5)
  - Nasopharyngitis [Recovering/Resolving]
  - Balance disorder [Recovering/Resolving]
  - Dizziness [Unknown]
  - Sinusitis [Unknown]
  - Muscle spasms [Unknown]
